FAERS Safety Report 6856031-5 (Version None)
Quarter: 2010Q3

REPORT INFORMATION
  Report Type: 
  Country: None (occurrence: None)
  Receive Date: 20100719
  Receipt Date: 20100715
  Transmission Date: 20110219
  Serious: Yes (Hospitalization, Other)
  Sender: FDA-Public Use
  Company Number: US-BRISTOL-MYERS SQUIBB COMPANY-15194293

PATIENT
  Age: 47 Year
  Sex: Female

DRUGS (4)
  1. COUMADIN [Suspect]
     Indication: CARDIAC DISORDER
     Dates: start: 20020101
  2. DIFLUCAN [Suspect]
     Indication: COCCIDIOIDOMYCOSIS
     Dates: start: 20100101
  3. TIKOSYN [Concomitant]
  4. XANAX [Concomitant]

REACTIONS (2)
  - COCCIDIOIDOMYCOSIS [None]
  - INTERNATIONAL NORMALISED RATIO INCREASED [None]
